FAERS Safety Report 6669817-7 (Version None)
Quarter: 2010Q2

REPORT INFORMATION
  Report Type: 
  Country: None (occurrence: None)
  Receive Date: 20100402
  Receipt Date: 20100319
  Transmission Date: 20101027
  Serious: Yes (Hospitalization, Other)
  Sender: FDA-Public Use
  Company Number: 230538J10BRA

PATIENT
  Age: 41 Year
  Sex: Female

DRUGS (3)
  1. REBIF [Suspect]
     Indication: RELAPSING-REMITTING MULTIPLE SCLEROSIS
     Dosage: 44 MCG, 3 IN 1 WEEKS
     Dates: start: 20081104
  2. MANTIDAN (AMANTADINE HYDROCHLORIDE) [Concomitant]
  3. CITALOPRAM HYDROBROMIDE [Concomitant]

REACTIONS (4)
  - ASTHMA [None]
  - CHILLS [None]
  - PYREXIA [None]
  - URINARY TRACT INFECTION [None]
